FAERS Safety Report 6149145-9 (Version None)
Quarter: 2009Q2

REPORT INFORMATION
  Report Type: 
  Country: None (occurrence: None)
  Receive Date: 20090409
  Receipt Date: 20090407
  Transmission Date: 20091009
  Serious: Yes (Hospitalization)
  Sender: FDA-Public Use
  Company Number: US-BRISTOL-MYERS SQUIBB COMPANY-14578579

PATIENT
  Age: 60 Year
  Sex: Female
  Weight: 82 kg

DRUGS (27)
  1. TAXOL [Suspect]
     Indication: BREAST CANCER METASTATIC
     Dosage: 65MG/M2,WKLY,EVERY 7DX21D,TDD 116MG(CYCLE 4),CUMULATIVE DOSE OF 1854MG,28OCT08-17FEB09.
     Route: 042
     Dates: start: 20090217, end: 20090217
  2. SUTENT [Suspect]
     Indication: BREAST CANCER METASTATIC
     Dosage: 37.5MG,DAILY,CUMULATIVE DOSE 3850MG CYCLE 4.
     Route: 048
     Dates: start: 20090217, end: 20090217
  3. EFFEXOR XR [Concomitant]
     Dates: start: 20080501
  4. DOCUSATE SODIUM [Concomitant]
     Dates: start: 20080101
  5. IBUPROFEN [Concomitant]
     Dates: start: 20040117
  6. AMBIEN [Concomitant]
     Dates: start: 20080401
  7. HYDROCHLOROTHIAZIDE [Concomitant]
     Dates: start: 20080819
  8. ZOMETA [Concomitant]
     Dates: start: 20080819
  9. CALCIUM [Concomitant]
     Dates: start: 20080819
  10. VITAMIN D [Concomitant]
     Dates: start: 20080819
  11. FISH OIL [Concomitant]
     Dates: start: 20080301
  12. VITAMIN E [Concomitant]
     Dates: start: 20080301
  13. ASCORBIC ACID [Concomitant]
     Dates: start: 20080801
  14. VITAMIN B-12 [Concomitant]
     Dates: start: 20080301
  15. BENADRYL [Concomitant]
     Dates: start: 19980101
  16. LOTRISONE [Concomitant]
  17. LORAZEPAM [Concomitant]
     Dates: start: 20081111
  18. PROCHLORPERAZINE [Concomitant]
     Dates: start: 20081111
  19. MAGIC MOUTHWASH [Concomitant]
     Dates: start: 20081120
  20. HYDROCODONE BITARTRATE [Concomitant]
     Dates: end: 20090212
  21. SODIUM CHLORIDE [Concomitant]
     Dates: start: 20081216
  22. GELCLAIR [Concomitant]
     Dates: start: 20081216
  23. ZYRTEC [Concomitant]
     Dates: start: 20040101
  24. PROMETHAZINE HCL [Concomitant]
     Dates: start: 20090126
  25. ZOFRAN [Concomitant]
     Dates: start: 20090127
  26. MS CONTIN [Concomitant]
     Dates: start: 20090212
  27. HYDROMORPHONE HCL [Concomitant]
     Dates: start: 20090212

REACTIONS (3)
  - GENERALISED OEDEMA [None]
  - HYPOKALAEMIA [None]
  - PANCYTOPENIA [None]
